FAERS Safety Report 22607504 (Version 1)
Quarter: 2023Q2

REPORT INFORMATION
  Report Type: Spontaneous
  Country: US (occurrence: US)
  Receive Date: 20230616
  Receipt Date: 20230616
  Transmission Date: 20230722
  Serious: Yes (Hospitalization, Other)
  Sender: FDA-Public Use
  Company Number: US-NOVOPROD-1076863

PATIENT

DRUGS (1)
  1. VICTOZA [Suspect]
     Active Substance: LIRAGLUTIDE
     Indication: Weight control
     Dosage: UNK
     Route: 058

REACTIONS (5)
  - Intracranial aneurysm [Unknown]
  - Subarachnoid haemorrhage [Unknown]
  - Blood glucose increased [Unknown]
  - Weight increased [Unknown]
  - Product use in unapproved indication [Unknown]
